FAERS Safety Report 8326211 (Version 7)
Quarter: 2012Q4

REPORT INFORMATION
  Report Type: 
  Country: US (occurrence: US)
  Receive Date: 20120106
  Receipt Date: 20121227
  Transmission Date: 20130627
  Serious: Yes (Hospitalization)
  Sender: FDA-Public Use
  Company Number: US-ASTRAZENECA-2011SE73745

PATIENT
  Age: 85 Year
  Sex: Male

DRUGS (4)
  1. TOPROL XL [Suspect]
     Route: 048
  2. TOPROL XL [Suspect]
     Route: 048
  3. CRESTOR [Suspect]
     Route: 048
  4. COUMADIN [Suspect]
     Route: 065

REACTIONS (11)
  - Head injury [Unknown]
  - Fall [Unknown]
  - Coagulation time prolonged [Unknown]
  - Areflexia [Unknown]
  - Blood potassium decreased [Unknown]
  - Arthritis [Unknown]
  - Back injury [Unknown]
  - Diabetes mellitus [Unknown]
  - Hypertension [Unknown]
  - Blood cholesterol increased [Unknown]
  - Headache [Unknown]
